FAERS Safety Report 5426402-2 (Version None)
Quarter: 2007Q3

REPORT INFORMATION
  Report Type: 
  Country: None (occurrence: None)
  Receive Date: 20070827
  Receipt Date: 20070815
  Transmission Date: 20080115
  Serious: Yes (Hospitalization, Other)
  Sender: FDA-Public Use
  Company Number: US-PFIZER INC-2007043099

PATIENT
  Sex: Female
  Weight: 81.6 kg

DRUGS (1)
  1. CELEBREX [Suspect]
     Indication: BACK PAIN
     Dates: start: 20010101, end: 20050101

REACTIONS (3)
  - CARDIAC FAILURE [None]
  - CARDIOVASCULAR DISORDER [None]
  - COMA [None]
